FAERS Safety Report 7437585-7 (Version None)
Quarter: 2011Q2

REPORT INFORMATION
  Report Type: 
  Country: None (occurrence: None)
  Receive Date: 20110426
  Receipt Date: 20110420
  Transmission Date: 20111010
  Serious: Yes (Hospitalization)
  Sender: FDA-Public Use
  Company Number: DE-ROCHE-674221

PATIENT
  Sex: Male
  Weight: 81 kg

DRUGS (6)
  1. BEVACIZUMAB [Suspect]
     Dosage: FREQ: 3 DOSES IN TOTAL . FORM: INFUSION LAST DOSE PRIOR TO SAE: 01 DEC 2009
     Route: 042
     Dates: start: 20091102
  2. ASPIRIN [Concomitant]
  3. CALCIUM [Concomitant]
     Dosage: DRUG: CALCIUM EFF
     Dates: start: 20091202
  4. OXALIPLATIN [Suspect]
     Dosage: DOSE: 50 MG/M2, FREQ: 4 DOSES IN TOTAL, LAST DOSE PRIOR TO SAE: 01 DEC 2009.
     Route: 042
     Dates: start: 20091102
  5. LOPERAMIDE [Concomitant]
     Dates: start: 20091201
  6. CAPECITABINE [Suspect]
     Dosage: LAST DOSE PRIOR TO SAE: 7 DECEMBER 2009.
     Route: 048
     Dates: start: 20091102

REACTIONS (4)
  - DIARRHOEA [None]
  - FACIAL BONES FRACTURE [None]
  - FALL [None]
  - GENERAL PHYSICAL HEALTH DETERIORATION [None]
